FAERS Safety Report 6367993-7 (Version None)
Quarter: 2009Q3

REPORT INFORMATION
  Report Type: 
  Country: None (occurrence: None)
  Receive Date: 20090922
  Receipt Date: 20090916
  Transmission Date: 20100115
  Serious: No
  Sender: FDA-Public Use
  Company Number: US-JNJFOC-20090905393

PATIENT
  Sex: Female
  Weight: 57.61 kg

DRUGS (2)
  1. DURAGESIC-100 [Suspect]
     Indication: PAIN
     Dosage: 1 PATCH EVERY 48 - 72 HOURS
     Route: 062
  2. XANAX [Concomitant]
     Indication: ANXIETY
     Dosage: AS NEEDED
     Route: 048

REACTIONS (4)
  - DRUG PRESCRIBING ERROR [None]
  - INAPPROPRIATE SCHEDULE OF DRUG ADMINISTRATION [None]
  - PAIN [None]
  - PRODUCT QUALITY ISSUE [None]
